FAERS Safety Report 18360201 (Version 2)
Quarter: 2022Q1

REPORT INFORMATION
  Report Type: Spontaneous
  Country: CA (occurrence: None)
  Receive Date: 20201008
  Receipt Date: 20220325
  Transmission Date: 20220423
  Serious: Yes (Hospitalization)
  Sender: FDA-Public Use
  Company Number: 2020SF27477

PATIENT
  Age: 52 Year
  Sex: Female

DRUGS (8)
  1. BUDESONIDE [Suspect]
     Active Substance: BUDESONIDE
     Indication: Product used for unknown indication
     Route: 055
  2. CRINONE [Suspect]
     Active Substance: PROGESTERONE
     Indication: Menopause
     Route: 065
  3. ESTROGEL [Suspect]
     Active Substance: ESTRADIOL
     Indication: Product used for unknown indication
     Dosage: UNK
     Route: 065
  4. LORATADINE [Suspect]
     Active Substance: LORATADINE
     Indication: Product used for unknown indication
     Dosage: 2 DF2.0DF UNKNOWN
     Route: 048
  5. PRASTERONE [Suspect]
     Active Substance: PRASTERONE
     Indication: Product used for unknown indication
     Route: 067
  6. PRASTERONE [Suspect]
     Active Substance: PRASTERONE
     Indication: Menopause
     Route: 067
  7. CLARITIN ALLERGY+ SINUS [Concomitant]
     Indication: Product used for unknown indication
     Route: 048
  8. GLICLAZIDE [Concomitant]
     Active Substance: GLICLAZIDE
     Indication: Product used for unknown indication
     Route: 048

REACTIONS (11)
  - Butterfly rash [Unknown]
  - Cellulitis [Unknown]
  - Feeling hot [Unknown]
  - Headache [Unknown]
  - Photosensitivity reaction [Unknown]
  - Tinnitus [Unknown]
  - Rash [Unknown]
  - Swelling face [Unknown]
  - Periorbital oedema [Unknown]
  - Head discomfort [Unknown]
  - Off label use [Unknown]
